FAERS Safety Report 10540132 (Version 3)
Quarter: 2015Q1

REPORT INFORMATION
  Report Type: Spontaneous
  Country: JP (occurrence: JP)
  Receive Date: 20141024
  Receipt Date: 20150127
  Transmission Date: 20150720
  Serious: Yes (Death)
  Sender: FDA-Public Use
  Company Number: JP-TEVA-517654ISR

PATIENT
  Age: 67 Year
  Sex: Female
  Weight: 36 kg

DRUGS (17)
  1. E-FEN BUCCAL [Suspect]
     Active Substance: FENTANYL CITRATE
     Indication: BREAKTHROUGH PAIN
     Dosage: DAILY DOSE: 0 - 100 MICROGRAM
     Route: 002
     Dates: start: 20140919, end: 20141008
  2. FLAVERIC [Concomitant]
     Active Substance: BENPROPERINE PHOSPHATE
     Indication: SUPPORTIVE CARE
     Dosage: 60 MG
     Route: 048
     Dates: end: 20141007
  3. ELIETEN [Concomitant]
     Active Substance: METOCLOPRAMIDE
     Indication: DECREASED APPETITE
     Dosage: 15 MG
     Route: 048
     Dates: end: 20141007
  4. FENTOS [Concomitant]
     Active Substance: FENTANYL
     Indication: CANCER PAIN
     Dosage: 6 MG
     Route: 062
     Dates: start: 20140918
  5. CALONAL [Concomitant]
     Active Substance: ACETAMINOPHEN
     Indication: CANCER PAIN
     Dosage: 1800 MILLIGRAM DAILY;
     Route: 048
  6. MERCAZOLE [Concomitant]
     Active Substance: CARBIMAZOLE
     Indication: HYPERTHYROIDISM
     Dosage: 5 MG
     Route: 048
     Dates: end: 20140925
  7. CISPLATIN. [Concomitant]
     Active Substance: CISPLATIN
     Indication: CHEMOTHERAPY
     Dosage: 5 MG
     Dates: start: 20140905, end: 20140919
  8. SULPIRIDE [Concomitant]
     Active Substance: SULPIRIDE
     Dosage: 150 MG
     Route: 048
     Dates: start: 20140917, end: 20140930
  9. OXINORM [Concomitant]
     Active Substance: OXYCODONE HYDROCHLORIDE
     Indication: CANCER PAIN
     Dosage: 15 MG
     Route: 048
     Dates: start: 20140924, end: 20141008
  10. LOXOPROFEN [Concomitant]
     Active Substance: LOXOPROFEN
     Indication: CANCER PAIN
     Dosage: 540 MILLIGRAM DAILY;
     Route: 048
  11. MAGLAX [Concomitant]
     Active Substance: MAGNESIUM OXIDE
     Dosage: 1.5 G
     Route: 048
     Dates: start: 20141001, end: 20141007
  12. KEISHIBUKURYOGAN [Concomitant]
     Active Substance: HERBALS
     Indication: NON-SMALL CELL LUNG CANCER
     Dosage: 5 G
     Route: 048
     Dates: start: 20141001, end: 20141007
  13. OXINORM [Concomitant]
     Active Substance: OXYCODONE HYDROCHLORIDE
     Dosage: 30 MG
     Route: 048
     Dates: start: 20140924, end: 20140924
  14. MAGLAX [Concomitant]
     Active Substance: MAGNESIUM OXIDE
     Indication: CONSTIPATION
     Dosage: 1 G
     Route: 048
     Dates: end: 20140925
  15. GOSHAJINKIGAN [Concomitant]
     Active Substance: HERBALS
     Indication: CANCER PAIN
     Dosage: 7.5 G
     Route: 048
     Dates: end: 20141007
  16. LYRICA [Concomitant]
     Active Substance: PREGABALIN
     Indication: CANCER PAIN
     Dosage: 150 MG
     Route: 048
     Dates: end: 20141007
  17. JUZENTAIHOTO [Concomitant]
     Dosage: 7.5 G
     Route: 048
     Dates: end: 20141007

REACTIONS (2)
  - Non-small cell lung cancer [Fatal]
  - Constipation [Recovered/Resolved]

NARRATIVE: CASE EVENT DATE: 20141001
